FAERS Safety Report 5677822-2 (Version None)
Quarter: 2008Q1

REPORT INFORMATION
  Report Type: 
  Country: None (occurrence: None)
  Receive Date: 20080318
  Receipt Date: 20080227
  Transmission Date: 20080703
  Serious: Yes (Death)
  Sender: FDA-Public Use
  Company Number: US022230

PATIENT
  Age: 44 Year
  Sex: Male

DRUGS (3)
  1. FENTORA [Suspect]
     Dosage: 10 TABLETS ONCE BUCCAL
     Route: 002
     Dates: start: 20071231, end: 20071231
  2. ETHANOL [Suspect]
     Dates: end: 20080101
  3. CODEINE SUL TAB [Suspect]
     Dates: end: 20080101

REACTIONS (16)
  - ACCIDENTAL DEATH [None]
  - ALCOHOL ABUSE [None]
  - ALCOHOL POISONING [None]
  - BLOOD ETHANOL INCREASED [None]
  - CARDIOMEGALY [None]
  - DRUG DIVERSION [None]
  - DRUG SCREEN POSITIVE [None]
  - HEPATIC FIBROSIS [None]
  - INCORRECT DOSE ADMINISTERED [None]
  - MENTAL STATUS CHANGES [None]
  - OVERDOSE [None]
  - REFUSAL OF TREATMENT BY PATIENT [None]
  - RENAL DISORDER [None]
  - SELF-MEDICATION [None]
  - THERAPEUTIC AGENT TOXICITY [None]
  - UNRESPONSIVE TO STIMULI [None]
